FAERS Safety Report 9544213 (Version 1)
Quarter: 2013Q3

REPORT INFORMATION
  Report Type: Spontaneous
  Country: US (occurrence: US)
  Receive Date: 20130923
  Receipt Date: 20130923
  Transmission Date: 20140515
  Serious: No
  Sender: FDA-Public Use
  Company Number: US-ASTRAZENECA-2013SE65734

PATIENT
  Age: 76 Year
  Sex: Female
  Weight: 47.6 kg

DRUGS (2)
  1. SEROQUEL [Suspect]
     Route: 048
     Dates: start: 201306
  2. LISINOPRIL [Suspect]
     Indication: HYPERTENSION
     Route: 048

REACTIONS (8)
  - Aggression [Unknown]
  - Agitation [Unknown]
  - Gait disturbance [Unknown]
  - Confusional state [Unknown]
  - Vascular dementia [Unknown]
  - Urinary incontinence [Unknown]
  - Hypotension [Unknown]
  - Lethargy [Unknown]
